FAERS Safety Report 5671018-6 (Version None)
Quarter: 2008Q1

REPORT INFORMATION
  Report Type: 
  Country: None (occurrence: None)
  Receive Date: 20080318
  Receipt Date: 20080307
  Transmission Date: 20080703
  Serious: Yes (Hospitalization)
  Sender: FDA-Public Use
  Company Number: US-ELI_LILLY_AND_COMPANY-US200803003257

PATIENT
  Age: 30 Year
  Sex: Male

DRUGS (4)
  1. HUMALOG [Suspect]
  2. HUMULIN 70/30 [Suspect]
  3. HUMULIN R [Suspect]
  4. LANTUS [Concomitant]

REACTIONS (1)
  - HOSPITALISATION [None]
